FAERS Safety Report 15405624 (Version 1)
Quarter: 2018Q3

REPORT INFORMATION
  Report Type: Spontaneous
  Country: US (occurrence: US)
  Receive Date: 20180920
  Receipt Date: 20180920
  Transmission Date: 20181010
  Serious: Yes (Other)
  Sender: FDA-Public Use
  Company Number: US-ASTRAZENECA-2018SF18480

PATIENT
  Age: 21322 Day
  Sex: Male
  Weight: 61.2 kg

DRUGS (3)
  1. VENTOLIN [Concomitant]
     Active Substance: ALBUTEROL SULFATE
     Dosage: 2 PUFFS TWICE A D DAY AS NEEDED
     Route: 055
  2. SYMBICORT [Suspect]
     Active Substance: BUDESONIDE\FORMOTEROL FUMARATE DIHYDRATE
     Indication: CHRONIC OBSTRUCTIVE PULMONARY DISEASE
     Dosage: 160/4.5 MCG TWO RESPITORY INHALATIONS TWICE A DAY
     Route: 055
  3. TUDORZA PRESSAIR [Suspect]
     Active Substance: ACLIDINIUM BROMIDE
     Indication: CHRONIC OBSTRUCTIVE PULMONARY DISEASE
     Route: 055

REACTIONS (10)
  - Drug dose omission [Not Recovered/Not Resolved]
  - Condition aggravated [Not Recovered/Not Resolved]
  - Migraine [Not Recovered/Not Resolved]
  - Back pain [Not Recovered/Not Resolved]
  - Circumstance or information capable of leading to medication error [Not Recovered/Not Resolved]
  - Pulmonary function test decreased [Unknown]
  - Dyspnoea [Not Recovered/Not Resolved]
  - Device malfunction [Unknown]
  - Back injury [Unknown]
  - Off label use [Not Recovered/Not Resolved]

NARRATIVE: CASE EVENT DATE: 20180911
